FAERS Safety Report 9816327 (Version 1)
Quarter: 2014Q1

REPORT INFORMATION
  Report Type: Report from Study
  Country: DE (occurrence: DE)
  Receive Date: 20140114
  Receipt Date: 20140114
  Transmission Date: 20141002
  Serious: Yes (Death)
  Sender: FDA-Public Use
  Company Number: DE-BAXTER-2014BAX000940

PATIENT
  Sex: 0

DRUGS (1)
  1. KIOVIG (1 G/10 ML) [Suspect]
     Indication: IMMUNOSUPPRESSANT DRUG THERAPY
     Route: 042

REACTIONS (1)
  - Drug therapeutic incompatibility [Fatal]
